FAERS Safety Report 13385090 (Version 2)
Quarter: 2017Q2

REPORT INFORMATION
  Report Type: Spontaneous
  Country: FR (occurrence: FR)
  Receive Date: 20170329
  Receipt Date: 20170529
  Transmission Date: 20170830
  Serious: Yes (Other)
  Sender: FDA-Public Use
  Company Number: FR-MERCK KGAA-1064802

PATIENT
  Age: 52 Year
  Sex: Female

DRUGS (16)
  1. OXYNORMORO [Suspect]
     Active Substance: OXYCODONE
     Route: 048
  2. DOLIPRANE [Suspect]
     Active Substance: ACETAMINOPHEN
     Route: 048
     Dates: start: 20151220
  3. DOLIPRANE [Suspect]
     Active Substance: ACETAMINOPHEN
     Route: 048
     Dates: start: 20151220
  4. OXYCONTIN [Suspect]
     Active Substance: OXYCODONE HYDROCHLORIDE
     Route: 048
  5. METOJECT [Suspect]
     Active Substance: METHOTREXATE SODIUM
     Route: 058
  6. NOVOTHYROX [Suspect]
     Active Substance: LEVOTHYROXINE SODIUM
     Indication: HYPOTHYROIDISM
     Route: 048
  7. REMICADE [Suspect]
     Active Substance: INFLIXIMAB
     Route: 065
     Dates: start: 20170228
  8. METOJECT [Suspect]
     Active Substance: METHOTREXATE SODIUM
     Route: 058
     Dates: start: 20161229, end: 20170228
  9. DESOGESTREL [Suspect]
     Active Substance: DESOGESTREL
     Route: 048
     Dates: start: 20151220
  10. OGAST [Suspect]
     Active Substance: LANSOPRAZOLE
     Route: 048
  11. IRBESARTAN. [Suspect]
     Active Substance: IRBESARTAN
     Route: 048
  12. PREVISCAN [Suspect]
     Active Substance: FLUINDIONE
     Route: 048
     Dates: start: 20151220
  13. REMICADE [Suspect]
     Active Substance: INFLIXIMAB
     Route: 042
     Dates: start: 2010
  14. REMICADE [Suspect]
     Active Substance: INFLIXIMAB
     Route: 065
     Dates: start: 20161010
  15. SPECIAFOLDINE [Suspect]
     Active Substance: FOLIC ACID
     Route: 048
  16. OXYNORMORO [Suspect]
     Active Substance: OXYCODONE
     Route: 048

REACTIONS (1)
  - Thrombocytopenia [Recovered/Resolved]

NARRATIVE: CASE EVENT DATE: 20161219
